FAERS Safety Report 8965823 (Version 2)
Quarter: 2012Q4

REPORT INFORMATION
  Report Type: Report from Study
  Country: US (occurrence: US)
  Receive Date: 20121214
  Receipt Date: 20121230
  Transmission Date: 20130627
  Serious: Yes (Hospitalization)
  Sender: FDA-Public Use
  Company Number: US-US-EMD SERONO, INC.-7180165

PATIENT
  Age: 47 None
  Sex: Female

DRUGS (1)
  1. SAIZEN [(SOMATROPIN (RDNA ORIGIN) FOR INJECTION)] [Suspect]
     Indication: PRODUCT USED FOR UNKNOWN INDICATION
     Dates: start: 20090819, end: 201211

REACTIONS (4)
  - Influenza [Recovered/Resolved]
  - Road traffic accident [Recovering/Resolving]
  - Post-traumatic neck syndrome [Unknown]
  - Ligament sprain [Unknown]
